FAERS Safety Report 12892232 (Version 1)
Quarter: 2016Q4

REPORT INFORMATION
  Report Type: Spontaneous
  Country: US (occurrence: US)
  Receive Date: 20161026
  Receipt Date: 20161026
  Transmission Date: 20170207
  Serious: Yes (Death)
  Sender: FDA-Public Use
  Company Number: None

PATIENT
  Age: 46 Year
  Sex: Male

DRUGS (5)
  1. ... [Concomitant]
  2. VITAMIN D [Concomitant]
     Active Substance: CHOLECALCIFEROL
  3. AQUADEKS [Concomitant]
     Active Substance: MINERALS\VITAMINS
  4. LUMIDOL RETARD [Concomitant]
     Active Substance: TRAMADOL HYDROCHLORIDE
  5. PULMOZYME [Suspect]
     Active Substance: DORNASE ALFA
     Indication: CYSTIC FIBROSIS
     Dosage: 1MG/1ML QD INHALATION
     Route: 055
     Dates: start: 20150601, end: 20160711

REACTIONS (1)
  - Death [None]

NARRATIVE: CASE EVENT DATE: 201610
